FAERS Safety Report 8465613-9 (Version None)
Quarter: 2012Q2

REPORT INFORMATION
  Report Type: 
  Country: None (occurrence: None)
  Receive Date: 20120323
  Receipt Date: 20111017
  Transmission Date: 20120825
  Serious: Yes (Hospitalization)
  Sender: FDA-Public Use
  Company Number: 163-21880-11101899

PATIENT
  Age: 93 Year
  Sex: Female

DRUGS (4)
  1. TRIAMTERENE/HCTZ (DYAZIDE) (UNKNOWN) [Concomitant]
  2. LOVENOX (HEPARIN-FRACTION, SODIUM SALT) (UNKNOWN) [Concomitant]
  3. REVLIMID [Suspect]
     Indication: MYELOFIBROSIS
     Dosage: 5 MG, DAILY FOR 28 DAYS, PO
     Route: 048
     Dates: start: 20110930
  4. ASPIRIN [Concomitant]

REACTIONS (2)
  - RASH PRURITIC [None]
  - GOUT [None]
